FAERS Safety Report 8878794 (Version 1)
Quarter: 2012Q4

REPORT INFORMATION
  Report Type: 
  Country: JP (occurrence: JP)
  Receive Date: 20121026
  Receipt Date: 20121026
  Transmission Date: 20130627
  Serious: Yes (Life-Threatening, Hospitalization, Other)
  Sender: FDA-Public Use
  Company Number: JP-PFIZER INC-2011217461

PATIENT
  Age: 43 Year
  Sex: Male
  Weight: 60.7 kg

DRUGS (9)
  1. LYRICA [Suspect]
     Indication: NEURALGIA
     Dosage: 75 mg, 2x/day
     Route: 048
     Dates: start: 20110825, end: 20110901
  2. NOVORAPID [Concomitant]
     Indication: DIABETES MELLITUS
     Dosage: 20 units, daily
     Route: 058
     Dates: start: 20110224
  3. LEVEMIR [Concomitant]
     Indication: DIABETES MELLITUS
     Dosage: 3 IU, 1x/day
     Route: 058
     Dates: start: 20110221
  4. LASIX [Concomitant]
     Indication: NEPHROTIC SYNDROME
     Dosage: 20 mg, 1x/day
     Route: 048
     Dates: start: 20110205
  5. METGLUCO [Concomitant]
     Indication: DIABETES MELLITUS
     Dosage: 250 mg, 3x/day
     Route: 048
     Dates: start: 20110721, end: 20110905
  6. GASMOTIN [Concomitant]
     Indication: GASTROINTESTINAL DISORDER
     Dosage: 5 mg, 3x/day
     Route: 048
     Dates: start: 20110222, end: 20110901
  7. LIPITOR [Concomitant]
     Indication: DYSLIPIDAEMIA
     Dosage: 10 mg, 1x/day
     Route: 048
     Dates: start: 20110218
  8. BLOPRESS [Concomitant]
     Indication: HYPERTENSION
     Dosage: 2 mg, 1x/day
     Route: 048
     Dates: start: 20110620
  9. BIOFERMIN [Concomitant]
     Indication: DIARRHOEA
     Dosage: UNK, 3x/day
     Route: 048
     Dates: start: 20110810, end: 20110901

REACTIONS (3)
  - Cardiac failure congestive [Recovered/Resolved]
  - Generalised oedema [Recovered/Resolved]
  - Pleural effusion [Recovered/Resolved]
